FAERS Safety Report 7936000-4 (Version None)
Quarter: 2011Q4

REPORT INFORMATION
  Report Type: 
  Country: None (occurrence: None)
  Receive Date: 20111123
  Receipt Date: 20111121
  Transmission Date: 20120403
  Serious: Yes (Life-Threatening)
  Sender: FDA-Public Use
  Company Number: JP-BAYER-201010473BYL

PATIENT
  Age: 65 Year
  Sex: Male
  Weight: 68 kg

DRUGS (3)
  1. SORAFENIB (RAF KINASE INHIBITOR) [Suspect]
     Dosage: DAILY DOSE 400 MG
     Route: 048
     Dates: start: 20091002, end: 20091112
  2. SORAFENIB (RAF KINASE INHIBITOR) [Suspect]
     Dosage: DAILY DOSE 600 MG
     Route: 048
     Dates: start: 20091113, end: 20100121
  3. SORAFENIB (RAF KINASE INHIBITOR) [Suspect]
     Indication: RENAL CELL CARCINOMA
     Dosage: DAILY DOSE 800 MG
     Route: 048
     Dates: start: 20090907, end: 20090923

REACTIONS (4)
  - HEPATIC FUNCTION ABNORMAL [None]
  - PALMAR-PLANTAR ERYTHRODYSAESTHESIA SYNDROME [None]
  - BLOOD PRESSURE INCREASED [None]
  - EOSINOPHIL COUNT INCREASED [None]
